FAERS Safety Report 18466346 (Version 2)
Quarter: 2020Q4

REPORT INFORMATION
  Report Type: Spontaneous
  Country: AU (occurrence: AU)
  Receive Date: 20201105
  Receipt Date: 20201114
  Transmission Date: 20210114
  Serious: Yes (Other)
  Sender: FDA-Public Use
  Company Number: AU-GENERIC HEALTH PTY. LTD.-2020-08317

PATIENT
  Age: 16 Year
  Sex: Male

DRUGS (3)
  1. QUETIAPINE TABLETS [Suspect]
     Active Substance: QUETIAPINE
     Indication: PRODUCT USED FOR UNKNOWN INDICATION
     Dosage: UNK
     Route: 045
  2. FLUOXETINE [Concomitant]
     Active Substance: FLUOXETINE HYDROCHLORIDE
     Indication: POST-TRAUMATIC STRESS DISORDER
     Dosage: 30 MILLIGRAM, IN THE MORNING
     Route: 065
  3. MELATONIN [Concomitant]
     Active Substance: MELATONIN
     Indication: SLEEP DISORDER
     Dosage: 2 MILLIGRAM, AT NIGHT
     Route: 065

REACTIONS (6)
  - Intentional product misuse [Unknown]
  - Neutropenia [Recovered/Resolved]
  - Drug abuse [Unknown]
  - Intentional product use issue [Unknown]
  - Toxicity to various agents [Unknown]
  - Wrong technique in product usage process [Unknown]

NARRATIVE: CASE EVENT DATE: 20150402
